FAERS Safety Report 21772005 (Version 1)
Quarter: 2022Q4

REPORT INFORMATION
  Report Type: Spontaneous
  Country: BR (occurrence: BR)
  Receive Date: 20221223
  Receipt Date: 20221223
  Transmission Date: 20230113
  Serious: Yes (Death, Hospitalization, Other)
  Sender: FDA-Public Use
  Company Number: BR-GLAXOSMITHKLINE-BR2022AMR191774

PATIENT

DRUGS (16)
  1. ALBUTEROL [Suspect]
     Active Substance: ALBUTEROL
     Indication: Pyrexia
     Dosage: UNK
  2. ALBUTEROL [Suspect]
     Active Substance: ALBUTEROL
     Indication: Tachypnoea
  3. ALBUTEROL [Suspect]
     Active Substance: ALBUTEROL
     Indication: Wheezing
  4. ALBUTEROL [Suspect]
     Active Substance: ALBUTEROL
     Indication: Asthma
  5. HYDROCORTISONE [Suspect]
     Active Substance: HYDROCORTISONE
     Indication: Pyrexia
     Dosage: UNK
  6. HYDROCORTISONE [Suspect]
     Active Substance: HYDROCORTISONE
     Indication: Tachypnoea
  7. HYDROCORTISONE [Suspect]
     Active Substance: HYDROCORTISONE
     Indication: Wheezing
  8. HYDROCORTISONE [Suspect]
     Active Substance: HYDROCORTISONE
     Indication: Asthma
  9. MAGNESIUM SULFATE [Suspect]
     Active Substance: MAGNESIUM SULFATE
     Indication: Pyrexia
     Dosage: UNK
  10. MAGNESIUM SULFATE [Suspect]
     Active Substance: MAGNESIUM SULFATE
     Indication: Tachypnoea
  11. MAGNESIUM SULFATE [Suspect]
     Active Substance: MAGNESIUM SULFATE
     Indication: Wheezing
  12. MAGNESIUM SULFATE [Suspect]
     Active Substance: MAGNESIUM SULFATE
     Indication: Asthma
  13. TERBUTALINE [Suspect]
     Active Substance: TERBUTALINE
     Indication: Pyrexia
     Dosage: UNK
  14. TERBUTALINE [Suspect]
     Active Substance: TERBUTALINE
     Indication: Tachypnoea
  15. TERBUTALINE [Suspect]
     Active Substance: TERBUTALINE
     Indication: Wheezing
  16. TERBUTALINE [Suspect]
     Active Substance: TERBUTALINE
     Indication: Asthma

REACTIONS (2)
  - Drug ineffective [Fatal]
  - Asthma [Fatal]
